FAERS Safety Report 6189795-7 (Version None)
Quarter: 2009Q2

REPORT INFORMATION
  Report Type: 
  Country: None (occurrence: None)
  Receive Date: 20090514
  Receipt Date: 20090505
  Transmission Date: 20091009
  Serious: Yes (Other)
  Sender: FDA-Public Use
  Company Number: FR-BAYER-200920088GPV

PATIENT
  Age: 0 Hour
  Weight: 2.43 kg

DRUGS (6)
  1. ADALAT [Suspect]
     Indication: THREATENED LABOUR
     Route: 064
  2. ADALAT [Suspect]
     Indication: THREATENED LABOUR
     Dosage: TOTAL DAILY DOSE: 160 MG  UNIT DOSE: 20 MG
     Route: 064
     Dates: start: 20090218, end: 20090315
  3. ADALAT [Suspect]
     Dosage: UNIT DOSE: 20 MG
     Route: 064
     Dates: end: 20090415
  4. ADALAT [Suspect]
     Dosage: TOTAL DAILY DOSE: 120 MG  UNIT DOSE: 20 MG
     Route: 064
     Dates: start: 20090316
  5. SPASFON [Concomitant]
     Indication: DRUG USE FOR UNKNOWN INDICATION
     Route: 064
     Dates: start: 20090316
  6. LEVOTHYROX [Concomitant]
     Indication: DRUG USE FOR UNKNOWN INDICATION
     Dosage: TOTAL DAILY DOSE: 75 ?G
     Route: 064
     Dates: start: 20090316

REACTIONS (1)
  - NEONATAL RESPIRATORY DEPRESSION [None]
